FAERS Safety Report 4774018-3 (Version None)
Quarter: 2005Q3

REPORT INFORMATION
  Report Type: 
  Country: None (occurrence: None)
  Receive Date: 20050920
  Receipt Date: 20050912
  Transmission Date: 20060218
  Serious: Yes (Hospitalization)
  Sender: FDA-Public Use
  Company Number: US-BRISTOL-MYERS SQUIBB COMPANY-13107602

PATIENT
  Age: 28 Year
  Sex: Female

DRUGS (3)
  1. TRAZODONE HCL [Suspect]
     Indication: DEPRESSION
  2. TRAZODONE HCL [Suspect]
     Indication: INSOMNIA
  3. HALOPERIDOL [Concomitant]

REACTIONS (1)
  - PSYCHOTIC DISORDER [None]
